FAERS Safety Report 8262517-1 (Version None)
Quarter: 2012Q2

REPORT INFORMATION
  Report Type: 
  Country: None (occurrence: None)
  Receive Date: 20120405
  Receipt Date: 20120327
  Transmission Date: 20120825
  Serious: Yes (Other)
  Sender: FDA-Public Use
  Company Number: FR-ASTRAZENECA-2012SE16872

PATIENT
  Age: 60 Year
  Sex: Female
  Weight: 70 kg

DRUGS (2)
  1. FLUTICASONE PROPIONATE/SALMETEROL [Concomitant]
     Indication: ASTHMA
     Route: 055
     Dates: start: 19990101
  2. QUETIAPINE FUMARATE [Suspect]
     Indication: MAJOR DEPRESSION
     Route: 048
     Dates: start: 20120209, end: 20120217

REACTIONS (2)
  - GENERALISED OEDEMA [None]
  - HYPERSENSITIVITY [None]
